FAERS Safety Report 9349568 (Version 1)
Quarter: 2013Q2

REPORT INFORMATION
  Report Type: Spontaneous
  Country: HU (occurrence: HU)
  Receive Date: 20130614
  Receipt Date: 20130614
  Transmission Date: 20140414
  Serious: Yes (Hospitalization)
  Sender: FDA-Public Use
  Company Number: HU-GLAXOSMITHKLINE-B0899257A

PATIENT
  Age: 9 Month
  Sex: Female

DRUGS (4)
  1. VENTOLIN [Suspect]
     Indication: DYSPNOEA
     Route: 065
  2. SPIROPENT [Concomitant]
     Route: 065
  3. AMOXICILLIN [Concomitant]
     Route: 065
  4. PREDNISOLON [Concomitant]
     Route: 065

REACTIONS (2)
  - Drug ineffective [Unknown]
  - Bronchitis [Unknown]
